FAERS Safety Report 7229098-2 (Version None)
Quarter: 2011Q1

REPORT INFORMATION
  Report Type: 
  Country: None (occurrence: None)
  Receive Date: 20110117
  Receipt Date: 20101117
  Transmission Date: 20110831
  Serious: Yes (Death, Hospitalization)
  Sender: FDA-Public Use
  Company Number: DE-GENZYME-200915905GPV

PATIENT
  Age: 61 Year
  Sex: Female
  Weight: 94 kg

DRUGS (16)
  1. RITUXIMAB [Suspect]
     Indication: CHRONIC LYMPHOCYTIC LEUKAEMIA
     Dosage: UNK, UNK
     Route: 042
     Dates: start: 20081127, end: 20090201
  2. CYCLOPHOSPHAMIDE [Suspect]
     Dosage: 250 MG/M2, UNK
     Route: 042
  3. THYRONAJOD [Concomitant]
     Indication: PRODUCT USED FOR UNKNOWN INDICATION
     Dosage: 75 MG UNK
     Route: 065
     Dates: start: 20090309, end: 20090310
  4. RITUXIMAB [Suspect]
     Dosage: DOSE DECREASED
     Route: 042
     Dates: start: 20090202, end: 20090225
  5. RITUXIMAB [Suspect]
     Dosage: 500 MG, UNK
     Route: 042
  6. PANTOZOL [Concomitant]
     Indication: PRODUCT USED FOR UNKNOWN INDICATION
     Dosage: 40 MG UNK
     Route: 065
     Dates: start: 20090309, end: 20090310
  7. FLUDARA [Suspect]
     Dosage: 25 MG/M2, UNK
     Route: 042
  8. RITUXIMAB [Suspect]
     Dosage: UNK
     Route: 042
     Dates: start: 20090227
  9. FLUDARA [Suspect]
     Indication: CHRONIC LYMPHOCYTIC LEUKAEMIA
     Dosage: 25 MG/M2, UNK
     Route: 042
     Dates: start: 20081128
  10. FLUDARA [Suspect]
     Dosage: 25 MG/M2, UNK
     Route: 042
     Dates: start: 20090227
  11. CYCLOPHOSPHAMIDE [Suspect]
     Indication: CHRONIC LYMPHOCYTIC LEUKAEMIA
     Dosage: 250 MG/M2, UNK
     Route: 042
     Dates: start: 20081128
  12. CYCLOPHOSPHAMIDE [Suspect]
     Dosage: 250 MG/M2, UNK
     Route: 042
  13. ASPIRIN [Concomitant]
     Indication: PRODUCT USED FOR UNKNOWN INDICATION
     Dosage: 100 MG UNK
     Route: 065
     Dates: start: 20090309, end: 20090310
  14. CONCOR [Concomitant]
     Indication: PRODUCT USED FOR UNKNOWN INDICATION
     Dosage: 5 MG UNK
     Route: 065
     Dates: start: 20090309, end: 20090310
  15. FLUDARA [Suspect]
     Dosage: 25 MG/M2, UNK
     Route: 042
  16. CYCLOPHOSPHAMIDE [Suspect]
     Dosage: 250 MG/M2, UNK
     Route: 042
     Dates: start: 20090227

REACTIONS (8)
  - FEBRILE NEUTROPENIA [None]
  - NEUTROPENIC COLITIS [None]
  - SEPSIS [None]
  - DISSEMINATED INTRAVASCULAR COAGULATION [None]
  - PAIN [None]
  - MUSCULAR WEAKNESS [None]
  - SINUS TACHYCARDIA [None]
  - RENAL FAILURE ACUTE [None]
